FAERS Safety Report 9671390 (Version 3)
Quarter: 2014Q2

REPORT INFORMATION
  Report Type: Report from Study
  Country: GB (occurrence: GB)
  Receive Date: 20131106
  Receipt Date: 20140409
  Transmission Date: 20141212
  Serious: Yes (Other)
  Sender: FDA-Public Use
  Company Number: GB-UCBSA-102117

PATIENT
  Age: 81 Year
  Sex: Male

DRUGS (4)
  1. CERTOLIZUMAB PEGOL [Suspect]
     Indication: RHEUMATOID ARTHRITIS
     Route: 058
     Dates: start: 20110622, end: 2011
  2. METHOTREXATE [Concomitant]
     Indication: RHEUMATOID ARTHRITIS
     Dates: start: 20120917
  3. PREDNISOLONE [Concomitant]
  4. DIPYRIDAMOLE [Concomitant]

REACTIONS (2)
  - Basal cell carcinoma [Not Recovered/Not Resolved]
  - Squamous cell carcinoma [Unknown]
